FAERS Safety Report 17870452 (Version 9)
Quarter: 2020Q3

REPORT INFORMATION
  Report Type: Report from Study
  Country: TR (occurrence: TR)
  Receive Date: 20200608
  Receipt Date: 20200724
  Transmission Date: 20201103
  Serious: Yes (Hospitalization)
  Sender: FDA-Public Use
  Company Number: TR-EISAI MEDICAL RESEARCH-EC-2020-075598

PATIENT
  Age: 61 Year
  Sex: Female
  Weight: 62 kg

DRUGS (9)
  1. LEVOTHYROXINE SODIUM. [Concomitant]
     Active Substance: LEVOTHYROXINE SODIUM
     Dates: start: 20200414, end: 20200518
  2. PLACEBO [Suspect]
     Active Substance: UNSPECIFIED INGREDIENT
     Indication: HEPATOCELLULAR CARCINOMA
     Route: 041
     Dates: start: 20191209, end: 20200414
  3. CANTAB [Concomitant]
     Dates: start: 199906
  4. FLURBIPROFEN. [Concomitant]
     Active Substance: FLURBIPROFEN
     Dates: start: 20200414
  5. LENVATINIB [Suspect]
     Active Substance: LENVATINIB
     Indication: HEPATOCELLULAR CARCINOMA
     Route: 048
     Dates: start: 20191209, end: 20200526
  6. FOSTER [Concomitant]
     Active Substance: BECLOMETHASONE\FORMOTEROL
     Dates: start: 199401
  7. PLACEBO [Suspect]
     Active Substance: UNSPECIFIED INGREDIENT
     Route: 041
     Dates: start: 20200506, end: 20200506
  8. MENTHOL, MYRRH, PEPPERMINT OIL [Concomitant]
     Dates: start: 20200211
  9. DEXKETOPROFEN [Concomitant]
     Active Substance: DEXKETOPROFEN
     Dates: start: 20200414

REACTIONS (1)
  - Hypophagia [Not Recovered/Not Resolved]

NARRATIVE: CASE EVENT DATE: 20200527
